FAERS Safety Report 11302689 (Version 4)
Quarter: 2015Q4

REPORT INFORMATION
  Report Type: Spontaneous
  Country: CO (occurrence: CO)
  Receive Date: 20150723
  Receipt Date: 20151203
  Transmission Date: 20160304
  Serious: Yes (Hospitalization, Other)
  Sender: FDA-Public Use
  Company Number: CO-SUN PHARMACEUTICAL INDUSTRIES LTD-2015RR-100775

PATIENT

DRUGS (1)
  1. PARACETAMOL [Suspect]
     Active Substance: ACETAMINOPHEN
     Indication: PRODUCT USED FOR UNKNOWN INDICATION
     Dosage: 1 G, QID
     Route: 064

REACTIONS (5)
  - Foetal exposure during pregnancy [Unknown]
  - Foetal arrhythmia [Recovered/Resolved]
  - Patent ductus arteriosus [Recovered/Resolved]
  - Ventricular hypertrophy [Recovered/Resolved]
  - Pulmonary hypertension [Recovered/Resolved]
